FAERS Safety Report 9517198 (Version 1)
Quarter: 2013Q3

REPORT INFORMATION
  Report Type: Spontaneous
  Country: US (occurrence: US)
  Receive Date: 20130911
  Receipt Date: 20130911
  Transmission Date: 20140515
  Serious: No
  Sender: FDA-Public Use
  Company Number: US-ASTRAZENECA-2013SE52633

PATIENT
  Age: 35 Year
  Sex: Male
  Weight: 83.9 kg

DRUGS (2)
  1. SYMBICORT [Suspect]
     Indication: ASTHMA
     Dosage: 80/4.5 MCG, 1 TO 2 PUFFS DAILY IN AM AND 1 AT NIGHT AS NEEDED
     Route: 055
     Dates: start: 2013
  2. VENTOLIN [Concomitant]
     Indication: ASTHMA
     Dosage: PRN
     Route: 055

REACTIONS (4)
  - Wheezing [Unknown]
  - Breath sounds abnormal [Unknown]
  - Off label use [Unknown]
  - Intentional drug misuse [Unknown]
